FAERS Safety Report 7077883-2 (Version None)
Quarter: 2010Q4

REPORT INFORMATION
  Report Type: 
  Country: None (occurrence: None)
  Receive Date: 20101101
  Receipt Date: 20101019
  Transmission Date: 20110411
  Serious: Yes (Hospitalization)
  Sender: FDA-Public Use
  Company Number: FR-ELI_LILLY_AND_COMPANY-FR201010004149

PATIENT
  Sex: Female

DRUGS (8)
  1. CYMBALTA [Suspect]
     Dosage: 60 MG, DAILY (1/D)
     Route: 048
     Dates: start: 20100810, end: 20100818
  2. PROZAC [Suspect]
     Dosage: 20 MG, DAILY (1/D)
     Route: 048
     Dates: start: 20100801, end: 20100810
  3. COAPROVEL [Concomitant]
     Dosage: 150 MG, DAILY (1/D)
     Route: 048
     Dates: end: 20100817
  4. CELECTOL [Concomitant]
  5. KARDEGIC [Concomitant]
  6. CARTREX [Concomitant]
  7. SYMBICORT [Concomitant]
  8. APROVEL [Concomitant]

REACTIONS (2)
  - GENERAL PHYSICAL HEALTH DETERIORATION [None]
  - HYPONATRAEMIA [None]
